FAERS Safety Report 9852592 (Version 1)
Quarter: 2014Q1

REPORT INFORMATION
  Report Type: Spontaneous
  Country: US (occurrence: None)
  Receive Date: 20140128
  Receipt Date: 20140128
  Transmission Date: 20141002
  Serious: Yes (Other)
  Sender: FDA-Public Use
  Company Number: None

PATIENT
  Age: 79 Year
  Sex: Female

DRUGS (4)
  1. CLARITHROMYCIN [Suspect]
     Indication: SINUSITIS
     Dosage: 28, BID, PO
     Route: 048
     Dates: start: 20140120, end: 20140126
  2. HYDROCHLOROTHIAZIDE [Concomitant]
  3. BENAZAPRIL [Concomitant]
  4. MULTIVITAMIN [Concomitant]

REACTIONS (2)
  - Insomnia [None]
  - Anxiety [None]
